FAERS Safety Report 4650205-X (Version None)
Quarter: 2005Q2

REPORT INFORMATION
  Report Type: 
  Country: None (occurrence: None)
  Receive Date: 20050428
  Receipt Date: 20050413
  Transmission Date: 20051028
  Serious: Yes (Hospitalization)
  Sender: FDA-Public Use
  Company Number: 214052

PATIENT
  Age: 54 Year
  Sex: Female
  Weight: 64 kg

DRUGS (10)
  1. HERCEPTIN [Suspect]
     Indication: BREAST CANCER METASTATIC
     Dosage: SEE IMAGE
     Route: 042
     Dates: start: 20041206, end: 20041206
  2. HERCEPTIN [Suspect]
     Indication: BREAST CANCER METASTATIC
     Dosage: SEE IMAGE
     Route: 042
     Dates: start: 20041227
  3. CAPECITABINE (CAPECITABINE) [Suspect]
     Indication: BREAST CANCER METASTATIC
     Dosage: 950 MG/M2, QD, ORAL
     Route: 048
     Dates: start: 20041207, end: 20050412
  4. DOCETAXEL (DOCETAXEL) [Suspect]
     Indication: BREAST CANCER METASTATIC
     Dosage: 75 MG/M2, Q3W, INTRAVENOUS
     Route: 042
     Dates: start: 20041207, end: 20050412
  5. DIFFLAM (BENZYDAMINE HYDROCHLORIDE) [Concomitant]
  6. WARFARIN SODIUM [Concomitant]
  7. MAXOLON [Concomitant]
  8. LACTULOSE [Concomitant]
  9. PYRIDOXINE HCL [Concomitant]
  10. LOPERAMIDE [Concomitant]

REACTIONS (2)
  - NEUTROPENIC SEPSIS [None]
  - ONYCHOLYSIS [None]
